FAERS Safety Report 13775488 (Version 2)
Quarter: 2017Q3

REPORT INFORMATION
  Report Type: Spontaneous
  Country: US (occurrence: US)
  Receive Date: 20170720
  Receipt Date: 20170726
  Transmission Date: 20171127
  Serious: Yes (Hospitalization)
  Sender: FDA-Public Use
  Company Number: US-CELGENEUS-USA-20170704038

PATIENT
  Age: 3 Year
  Sex: Male

DRUGS (4)
  1. THIOTEPA. [Concomitant]
     Active Substance: THIOTEPA
     Indication: PRODUCT USED FOR UNKNOWN INDICATION
     Route: 065
  2. CARBOPLATIN. [Concomitant]
     Active Substance: CARBOPLATIN
     Indication: PRODUCT USED FOR UNKNOWN INDICATION
     Route: 065
  3. THALOMID [Suspect]
     Active Substance: THALIDOMIDE
     Indication: BRAIN NEOPLASM MALIGNANT
  4. THALOMID [Suspect]
     Active Substance: THALIDOMIDE
     Indication: PINEAL PARENCHYMAL NEOPLASM MALIGNANT
     Dosage: 50 MILLIGRAM
     Route: 048
     Dates: start: 20170511, end: 20170710

REACTIONS (2)
  - Drug ineffective [Unknown]
  - Pineal parenchymal neoplasm malignant [Unknown]

NARRATIVE: CASE EVENT DATE: 20170710
